FAERS Safety Report 22057920 (Version 5)
Quarter: 2023Q2

REPORT INFORMATION
  Report Type: Report from Study
  Country: CA (occurrence: CA)
  Receive Date: 20230303
  Receipt Date: 20230503
  Transmission Date: 20230722
  Serious: Yes (Death, Hospitalization, Other)
  Sender: FDA-Public Use
  Company Number: CA-ABBVIE-4326009

PATIENT
  Age: 79 Year
  Sex: Male

DRUGS (11)
  1. CARBIDOPA\LEVODOPA [Suspect]
     Active Substance: CARBIDOPA\LEVODOPA
     Indication: Parkinson^s disease
     Dosage: DUODOPA-LEVODOPA20MG/ML,CARBIDOPAMONOHYDRATE5MG/ML
     Route: 050
     Dates: start: 20160606
  2. CARBIDOPA\LEVODOPA [Suspect]
     Active Substance: CARBIDOPA\LEVODOPA
  3. ZOPICLONE [Concomitant]
     Active Substance: ZOPICLONE
     Indication: Product used for unknown indication
     Route: 048
     Dates: start: 20230310
  4. MELATONIN [Concomitant]
     Active Substance: MELATONIN
     Indication: Product used for unknown indication
     Route: 048
  5. CHOLECALCIFEROL [Concomitant]
     Active Substance: CHOLECALCIFEROL
     Indication: Product used for unknown indication
     Route: 048
     Dates: start: 20230322
  6. MAGNESIUM [Concomitant]
     Active Substance: MAGNESIUM
     Indication: Product used for unknown indication
     Route: 048
     Dates: start: 20230311
  7. QUETIAPINE [Concomitant]
     Active Substance: QUETIAPINE
     Indication: Product used for unknown indication
     Dosage: FREQUENCY: EVERY NIGHT AT BEDTIME
     Route: 048
     Dates: start: 20230310
  8. LEVOFLOXACIN [Concomitant]
     Active Substance: LEVOFLOXACIN
     Indication: Product used for unknown indication
     Route: 048
     Dates: start: 20230310
  9. SILODOSIN [Concomitant]
     Active Substance: SILODOSIN
     Indication: Product used for unknown indication
     Route: 048
     Dates: start: 20230310
  10. AMLODIPINE BESYLATE [Concomitant]
     Active Substance: AMLODIPINE BESYLATE
     Indication: Product used for unknown indication
     Route: 048
     Dates: start: 20230310
  11. AMLODIPINE BESYLATE [Concomitant]
     Active Substance: AMLODIPINE BESYLATE
     Indication: Product used for unknown indication
     Route: 065

REACTIONS (23)
  - Cardiac failure [Fatal]
  - Device dislocation [Unknown]
  - General physical health deterioration [Not Recovered/Not Resolved]
  - Parkinson^s disease [Fatal]
  - Asthenia [Unknown]
  - Diastolic dysfunction [Unknown]
  - Sinus bradycardia [Unknown]
  - Bundle branch block right [Unknown]
  - Delirium [Not Recovered/Not Resolved]
  - Epilepsy [Unknown]
  - Urinary tract infection [Unknown]
  - Subdural haematoma [Unknown]
  - Aspiration [Unknown]
  - Device occlusion [Unknown]
  - Parkinson^s disease [Unknown]
  - Hypotension [Unknown]
  - Unevaluable event [Unknown]
  - Glomerular filtration rate decreased [Unknown]
  - Fall [Unknown]
  - Device kink [Unknown]
  - Pulmonary ossification [Unknown]
  - Lung opacity [Unknown]
  - Dyslipidaemia [Unknown]

NARRATIVE: CASE EVENT DATE: 20230115
